FAERS Safety Report 15064443 (Version 1)
Quarter: 2018Q2

REPORT INFORMATION
  Report Type: Report from Study
  Country: US (occurrence: US)
  Receive Date: 20180625
  Receipt Date: 20180625
  Transmission Date: 20180711
  Serious: No
  Sender: FDA-Public Use
  Company Number: US-AMGEN-USASL2016070161

PATIENT
  Age: 72 Year
  Sex: Female

DRUGS (1)
  1. REPATHA [Suspect]
     Active Substance: EVOLOCUMAB
     Indication: HYPERCHOLESTEROLAEMIA
     Dosage: 140 MG, Q2WK
     Route: 065
     Dates: start: 20160328

REACTIONS (8)
  - Blood creatine phosphokinase increased [Unknown]
  - Dry skin [Unknown]
  - Weight bearing difficulty [Unknown]
  - Pruritus [Unknown]
  - Acne [Unknown]
  - Arthralgia [Unknown]
  - Sleep disorder [Unknown]
  - Glycosylated haemoglobin increased [Unknown]
